FAERS Safety Report 20948110 (Version 9)
Quarter: 2022Q3

REPORT INFORMATION
  Report Type: Spontaneous
  Country: HU (occurrence: HU)
  Receive Date: 20220611
  Receipt Date: 20220812
  Transmission Date: 20221027
  Serious: Yes (Hospitalization, Other)
  Sender: FDA-Public Use
  Company Number: HU-NOVARTISPH-NVSC2022HU122474

PATIENT
  Age: 2 Year
  Sex: Male
  Weight: 12.48 kg

DRUGS (13)
  1. ZOLGENSMA [Suspect]
     Active Substance: ONASEMNOGENE ABEPARVOVEC-XIOI
     Indication: Product used for unknown indication
     Dosage: 8.3 ML, (TOTAL) (7X8.3 ML)/5.5 ML (TOTAL)
     Route: 042
     Dates: start: 20220428
  2. CEFUROXIME [Suspect]
     Active Substance: CEFUROXIME
     Indication: Pyrexia
     Dosage: 400 MG/KG, TID (400 MG/KG BODYWEIGHT/DAY)
     Route: 042
     Dates: start: 20220617
  3. CEFUROXIME [Suspect]
     Active Substance: CEFUROXIME
     Indication: Leukocytosis
     Dosage: UNK
     Route: 042
     Dates: end: 20220628
  4. CEFUROXIME [Suspect]
     Active Substance: CEFUROXIME
     Indication: Granulocytosis
     Dosage: UNK
     Route: 042
     Dates: start: 20220620
  5. CEFUROXIME [Suspect]
     Active Substance: CEFUROXIME
     Indication: Procalcitonin increased
     Dosage: UNK UNK, BID, (1 MEASURING SPOON)
     Route: 048
     Dates: start: 20220628, end: 20220712
  6. LACTOBACILLUS REUTERI [Concomitant]
     Active Substance: LACTOBACILLUS REUTERI
     Indication: Product used for unknown indication
     Dosage: UNK (DROPS)
     Route: 065
  7. FAMOTIDINE [Concomitant]
     Active Substance: FAMOTIDINE
     Indication: Product used for unknown indication
     Dosage: 0.5 MG/KG, BID
     Route: 048
     Dates: start: 20220427
  8. FAMOTIDINE [Concomitant]
     Active Substance: FAMOTIDINE
     Dosage: 6 MG, BID
     Route: 048
     Dates: end: 20220628
  9. VIGANTOL [Concomitant]
     Indication: Product used for unknown indication
     Dosage: UNK (DROPS)
     Route: 065
  10. STEROFUNDIN G [Concomitant]
     Indication: Product used for unknown indication
     Dosage: 500 ML, QD
     Route: 042
     Dates: start: 20220430, end: 20220506
  11. ONDANSETRON HYDROCHLORIDE [Concomitant]
     Active Substance: ONDANSETRON HYDROCHLORIDE
     Indication: Product used for unknown indication
     Dosage: 2 MG, QD
     Route: 042
     Dates: start: 20220430, end: 20220430
  12. PANTOPRAZOLE [Concomitant]
     Active Substance: PANTOPRAZOLE
     Indication: Product used for unknown indication
     Dosage: UNK
     Route: 042
     Dates: end: 20220628
  13. CONTROLOC [Concomitant]
     Active Substance: PANTOPRAZOLE SODIUM
     Indication: Product used for unknown indication
     Dosage: UNK
     Route: 042

REACTIONS (64)
  - Transaminases increased [Not Recovered/Not Resolved]
  - Alanine aminotransferase increased [Recovering/Resolving]
  - Aspartate aminotransferase increased [Recovering/Resolving]
  - Cholestasis [Unknown]
  - Hyperbilirubinaemia [Not Recovered/Not Resolved]
  - Vomiting [Recovered/Resolved]
  - Gamma-glutamyltransferase increased [Recovering/Resolving]
  - Intrinsic factor deficiency [Unknown]
  - Gallbladder enlargement [Unknown]
  - Procalcitonin increased [Recovering/Resolving]
  - Granulocytosis [Unknown]
  - Rotavirus infection [Recovered/Resolved]
  - Lipids increased [Unknown]
  - Lysosomal acid lipase deficiency [Unknown]
  - Urine ketone body present [Recovered/Resolved]
  - Blood glucose decreased [Unknown]
  - Neutrophil count decreased [Recovered/Resolved]
  - Blood sodium decreased [Recovered/Resolved]
  - Neutrophil count abnormal [Unknown]
  - Procalcitonin abnormal [Unknown]
  - Activated partial thromboplastin time prolonged [Unknown]
  - Fibrin D dimer increased [Unknown]
  - International normalised ratio normal [Unknown]
  - Blood glucose abnormal [Unknown]
  - Flatulence [Unknown]
  - SARS-CoV-2 antibody test positive [Unknown]
  - Blood sodium decreased [Unknown]
  - Flushing [Unknown]
  - Oral disorder [Unknown]
  - Monocytosis [Unknown]
  - Lymphocyte count abnormal [Unknown]
  - Jaundice [Unknown]
  - Red blood cell sedimentation rate increased [Unknown]
  - Platelet count decreased [Recovered/Resolved]
  - Pyrexia [Recovered/Resolved]
  - Blood creatinine increased [Recovered/Resolved]
  - Blood creatinine increased [Recovered/Resolved]
  - Leukocytosis [Not Recovered/Not Resolved]
  - C-reactive protein increased [Recovering/Resolving]
  - Constipation [Recovered/Resolved]
  - White blood cell count increased [Unknown]
  - Blood glucose increased [Unknown]
  - Blood albumin decreased [Unknown]
  - Blood triglycerides increased [Unknown]
  - Blood lactate dehydrogenase increased [Unknown]
  - Eosinophil count increased [Recovered/Resolved]
  - Mean cell volume abnormal [Recovering/Resolving]
  - Blood creatine phosphokinase MB increased [Recovered/Resolved]
  - Blood bilirubin increased [Recovered/Resolved]
  - Red cell distribution width increased [Recovering/Resolving]
  - Monocyte count increased [Recovered/Resolved]
  - Glycosuria [Recovered/Resolved]
  - Ammonia abnormal [Unknown]
  - Blood iron abnormal [Recovered/Resolved]
  - Scrotal inflammation [Recovered/Resolved]
  - Ammonia increased [Recovered/Resolved]
  - Neutrophil count abnormal [Recovering/Resolving]
  - Hyperglycaemia [Recovered/Resolved]
  - Hypoalbuminaemia [Recovered/Resolved]
  - Hypercholesterolaemia [Not Recovered/Not Resolved]
  - Macrocytosis [Unknown]
  - Platelet count abnormal [Not Recovered/Not Resolved]
  - Blood creatinine increased [Recovering/Resolving]
  - Eosinophil count increased [Recovering/Resolving]

NARRATIVE: CASE EVENT DATE: 20220430
